FAERS Safety Report 4963422-6 (Version None)
Quarter: 2006Q2

REPORT INFORMATION
  Report Type: 
  Country: None (occurrence: None)
  Receive Date: 20060405
  Receipt Date: 20060328
  Transmission Date: 20061013
  Serious: Yes (Hospitalization)
  Sender: FDA-Public Use
  Company Number: US-JNJFOC-20060400239

PATIENT
  Sex: Female
  Weight: 64.86 kg

DRUGS (7)
  1. DURAGESIC-100 [Suspect]
     Route: 062
  2. EFFEXOR [Concomitant]
     Indication: DEPRESSION
     Route: 048
  3. WELLBUTRIN SR [Concomitant]
     Indication: DEPRESSION
     Dosage: SIX HOURS APART
     Route: 048
  4. SEROQUEL [Concomitant]
     Indication: SLEEP DISORDER
     Dosage: 1/4 OF A 100 MG TABLET
     Route: 048
  5. AMBIEN [Concomitant]
     Indication: SLEEP DISORDER
     Dosage: AT BEDTIME
     Route: 048
  6. NEXIUM [Concomitant]
     Route: 048
  7. DIAZEPAM [Concomitant]
     Route: 048

REACTIONS (3)
  - ENDOMETRIOSIS [None]
  - POST PROCEDURAL HAEMORRHAGE [None]
  - THERAPEUTIC RESPONSE DECREASED [None]
